FAERS Safety Report 19658473 (Version 1)
Quarter: 2021Q3

REPORT INFORMATION
  Report Type: Report from Study
  Country: US (occurrence: US)
  Receive Date: 20210805
  Receipt Date: 20210805
  Transmission Date: 20211014
  Serious: Yes (Other)
  Sender: FDA-Public Use
  Company Number: US-AUROBINDO-AUR-APL-2021-033846

PATIENT
  Age: 45 Year
  Sex: Female
  Weight: 43.9 kg

DRUGS (1)
  1. BELINOSTAT [Suspect]
     Active Substance: BELINOSTAT
     Indication: ACUTE MYELOID LEUKAEMIA
     Dosage: UNK
     Route: 065

REACTIONS (33)
  - Non-cardiac chest pain [Unknown]
  - Haematuria [Unknown]
  - Hypocalcaemia [Unknown]
  - Purpura [Unknown]
  - Anxiety [Unknown]
  - Depression [Unknown]
  - Hypoalbuminaemia [Unknown]
  - Dysgeusia [Unknown]
  - Hyperglycaemia [Unknown]
  - Hypophosphataemia [Unknown]
  - Haemorrhoids [Unknown]
  - Dry mouth [Unknown]
  - Dry skin [Unknown]
  - Device related infection [Unknown]
  - Fungaemia [Unknown]
  - Gastrointestinal disorder [Unknown]
  - Stomatitis [Unknown]
  - Vision blurred [Unknown]
  - Electrocardiogram QT prolonged [Unknown]
  - Hypomagnesaemia [Unknown]
  - Fatigue [Unknown]
  - Back pain [Unknown]
  - Diarrhoea [Unknown]
  - Bone pain [Unknown]
  - Nausea [Unknown]
  - Oesophagitis [Unknown]
  - Dizziness [Unknown]
  - Pain in jaw [Unknown]
  - Dehydration [Unknown]
  - Hypotension [Unknown]
  - Hypokalaemia [Unknown]
  - Hypertension [Unknown]
  - Headache [Unknown]
